FAERS Safety Report 21840771 (Version 1)
Quarter: 2023Q1

REPORT INFORMATION
  Report Type: Spontaneous
  Country: CA (occurrence: CA)
  Receive Date: 20230110
  Receipt Date: 20230110
  Transmission Date: 20230418
  Serious: Yes (Hospitalization)
  Sender: FDA-Public Use
  Company Number: CA-TEVA-2023-CA-2843879

PATIENT
  Age: 29 Year
  Sex: Female
  Weight: 50 kg

DRUGS (1)
  1. SUMATRIPTAN [Suspect]
     Active Substance: SUMATRIPTAN
     Indication: Headache
     Route: 048

REACTIONS (2)
  - Reversible cerebral vasoconstriction syndrome [Unknown]
  - Thunderclap headache [Unknown]
